FAERS Safety Report 10456604 (Version 2)
Quarter: 2014Q3

REPORT INFORMATION
  Report Type: Spontaneous
  Country: BR (occurrence: None)
  Receive Date: 20140912
  Receipt Date: 20140918
  Transmission Date: 20150326
  Serious: Yes (Other)
  Sender: FDA-Public Use
  Company Number: 7319157

PATIENT
  Sex: Female

DRUGS (1)
  1. LEVOTHYROXINE SODIUM. [Suspect]
     Active Substance: LEVOTHYROXINE SODIUM
     Indication: PRODUCT USED FOR UNKNOWN INDICATION
     Dates: start: 20130904

REACTIONS (8)
  - Wrong technique in drug usage process [None]
  - Drug ineffective [None]
  - Fatigue [None]
  - Swelling [None]
  - Liver disorder [None]
  - Unevaluable event [None]
  - Renal failure [None]
  - Muscle spasms [None]
